FAERS Safety Report 5662502-X (Version None)
Quarter: 2008Q1

REPORT INFORMATION
  Report Type: 
  Country: None (occurrence: None)
  Receive Date: 20080313
  Receipt Date: 20080304
  Transmission Date: 20080703
  Serious: Yes (Hospitalization)
  Sender: FDA-Public Use
  Company Number: HQ7190116OCT2001

PATIENT
  Sex: Female

DRUGS (7)
  1. ADVIL [Suspect]
     Indication: EYE PRURITUS
     Dosage: UNKNOWN
     Route: 048
     Dates: start: 20001222, end: 20001224
  2. ADVIL [Suspect]
     Indication: EYELID OEDEMA
  3. ADVIL [Suspect]
     Indication: LIP OEDEMA
  4. AUGMENTIN '125' [Suspect]
     Indication: TONSILLITIS
     Dosage: UNKNOWN
     Route: 048
     Dates: start: 20001224, end: 20001201
  5. ACETYLCYSTEINE [Suspect]
     Indication: PRODUCTIVE COUGH
     Dosage: UNKNOWN
     Route: 048
     Dates: start: 20001224
  6. PHLOROGLUCINOL/TRIMETHYLPHLOROGLUCINOL [Suspect]
     Dosage: UNKNOWN (80MG) ON 12/14 AND 12/23
     Route: 048
     Dates: start: 20001214
  7. NOSCAPINE/POLYSORBATE 85/PROMETHAZINE [Suspect]
     Dosage: UNKNOWN
     Route: 048

REACTIONS (6)
  - ASTHMA [None]
  - BRONCHITIS CHRONIC [None]
  - DYSGRAPHIA [None]
  - LYMPHADENOPATHY [None]
  - RESPIRATORY FAILURE [None]
  - STEVENS-JOHNSON SYNDROME [None]
